FAERS Safety Report 12730643 (Version 1)
Quarter: 2016Q3

REPORT INFORMATION
  Report Type: Spontaneous
  Country: US (occurrence: US)
  Receive Date: 20160910
  Receipt Date: 20160910
  Transmission Date: 20161109
  Serious: No
  Sender: FDA-Public Use
  Company Number: US-ASTRAZENECA-2016SE75511

PATIENT
  Age: 57 Year
  Sex: Female

DRUGS (2)
  1. FORADIL [Concomitant]
     Active Substance: FORMOTEROL FUMARATE
  2. SYMBICORT [Suspect]
     Active Substance: BUDESONIDE\FORMOTEROL FUMARATE DIHYDRATE
     Route: 055

REACTIONS (3)
  - Intentional product misuse [Unknown]
  - Lower respiratory tract congestion [Recovering/Resolving]
  - Adverse reaction [Recovering/Resolving]
